FAERS Safety Report 6894160-0 (Version None)
Quarter: 2010Q3

REPORT INFORMATION
  Report Type: 
  Country: None (occurrence: None)
  Receive Date: 20100802
  Receipt Date: 20100721
  Transmission Date: 20110219
  Serious: Yes (Hospitalization)
  Sender: FDA-Public Use
  Company Number: CL-JNJFOC-20100404744

PATIENT
  Sex: Female
  Weight: 72 kg

DRUGS (15)
  1. GOLIMUMAB [Suspect]
     Indication: RHEUMATOID ARTHRITIS
     Route: 058
  2. GOLIMUMAB [Suspect]
     Route: 058
  3. GOLIMUMAB [Suspect]
     Route: 058
  4. METHOTREXATE [Suspect]
     Indication: RHEUMATOID ARTHRITIS
     Route: 048
  5. LEVOTHYROXINE SODIUM [Concomitant]
  6. FOLIC ACID [Concomitant]
  7. FUROSEMIDE [Concomitant]
  8. NIFEDIPINE [Concomitant]
  9. PREDNISONE [Concomitant]
  10. FLUOXETINE [Concomitant]
  11. OMEPRAZOLE [Concomitant]
  12. INDOMETHACIN SODIUM [Concomitant]
  13. METHOTREXATE [Concomitant]
     Route: 048
  14. METHOTREXATE [Concomitant]
     Route: 048
  15. CALCIUM CARBONATE [Concomitant]
     Route: 048

REACTIONS (1)
  - CELLULITIS [None]
